FAERS Safety Report 7171410-7 (Version None)
Quarter: 2010Q4

REPORT INFORMATION
  Report Type: 
  Country: None (occurrence: None)
  Receive Date: 20101217
  Receipt Date: 20101203
  Transmission Date: 20110411
  Serious: Yes (Hospitalization)
  Sender: FDA-Public Use
  Company Number: JP-GENENTECH-310148

PATIENT
  Sex: Male
  Weight: 35 kg

DRUGS (11)
  1. OMALIZUMAB [Suspect]
     Indication: ASTHMA
     Dosage: UNK
     Route: 058
     Dates: start: 20101108
  2. FLUTIDE DISKUS [Concomitant]
     Indication: PRODUCT USED FOR UNKNOWN INDICATION
  3. SEREVENT [Concomitant]
  4. SINGULAIR [Concomitant]
  5. THEO-DUR [Concomitant]
  6. ALESION [Concomitant]
  7. SPIROPENT [Concomitant]
  8. MUCOSOLVAN [Concomitant]
  9. MEPTIN [Concomitant]
  10. INTAL [Concomitant]
  11. HOKUNALIN [Concomitant]

REACTIONS (1)
  - URTICARIA [None]
